FAERS Safety Report 6488751-9 (Version None)
Quarter: 2009Q4

REPORT INFORMATION
  Report Type: 
  Country: None (occurrence: None)
  Receive Date: 20091210
  Receipt Date: 20090908
  Transmission Date: 20100525
  Serious: No
  Sender: FDA-Public Use
  Company Number: US-AMGEN-KDL363660

PATIENT
  Sex: Female

DRUGS (2)
  1. ENBREL [Suspect]
     Indication: ANKYLOSING SPONDYLITIS
     Route: 058
     Dates: start: 20081001
  2. ENBREL [Suspect]
     Indication: ARTHRITIS

REACTIONS (4)
  - ARTHRALGIA [None]
  - FATIGUE [None]
  - PNEUMONIA [None]
  - TOOTH DISORDER [None]
